FAERS Safety Report 21873017 (Version 1)
Quarter: 2023Q1

REPORT INFORMATION
  Report Type: Spontaneous
  Country: US (occurrence: None)
  Receive Date: 20230115
  Receipt Date: 20230115
  Transmission Date: 20230418
  Serious: Yes (Life-Threatening, Other)
  Sender: FDA-Public Use
  Company Number: None

PATIENT
  Age: 60 Year
  Sex: Female
  Weight: 63 kg

DRUGS (20)
  1. MORPHINE SULFATE [Suspect]
     Active Substance: MORPHINE SULFATE
     Indication: Multiple sclerosis
     Dosage: OTHER QUANTITY : 60 CAPSULE(S);?FREQUENCY : 4 TIMES A DAY;?
     Route: 048
     Dates: start: 20140601, end: 20230114
  2. MORPHINE SULFATE [Suspect]
     Active Substance: MORPHINE SULFATE
     Indication: Trigeminal neuralgia
  3. MORPHINE SULFATE [Suspect]
     Active Substance: MORPHINE SULFATE
     Indication: Basedow^s disease
  4. HYDROCODONE [Suspect]
     Active Substance: HYDROCODONE
  5. Wheel chair [Concomitant]
  6. Walker [Concomitant]
  7. OXYGEN [Concomitant]
     Active Substance: OXYGEN
  8. TEGRETOL [Concomitant]
     Active Substance: CARBAMAZEPINE
  9. Ropinirole (Requip) [Concomitant]
  10. LEVOXYL [Concomitant]
     Active Substance: LEVOTHYROXINE SODIUM
  11. Naloxone (Narcan) [Concomitant]
  12. Fluticasone-Umeclidin-Vilant (Trelegy Ellipta In) [Concomitant]
  13. Hydrocodone/Acetaminophen (Norco) [Concomitant]
  14. Cyanocobalamin (Vitamin B12) [Concomitant]
  15. MS CONTIN [Concomitant]
     Active Substance: MORPHINE SULFATE
  16. Kisempta [Concomitant]
  17. Vicks nasal inhaler [Concomitant]
  18. SUDAFED [Concomitant]
     Active Substance: PSEUDOEPHEDRINE HYDROCHLORIDE
  19. ZANTAC [Concomitant]
     Active Substance: RANITIDINE HYDROCHLORIDE
  20. VITAMIN D [Concomitant]
     Active Substance: VITAMIN D NOS

REACTIONS (12)
  - Drug screen positive [None]
  - COVID-19 [None]
  - Drug withdrawal syndrome [None]
  - Drug withdrawal convulsions [None]
  - Suicidal ideation [None]
  - Drug ineffective [None]
  - Quality of life decreased [None]
  - Hypokinesia [None]
  - Eye pain [None]
  - Myelitis transverse [None]
  - Drug dependence [None]
  - Pain [None]

NARRATIVE: CASE EVENT DATE: 20230113
